FAERS Safety Report 15282262 (Version 2)
Quarter: 2018Q3

REPORT INFORMATION
  Report Type: Spontaneous
  Country: IL (occurrence: IL)
  Receive Date: 20180815
  Receipt Date: 20180826
  Transmission Date: 20181010
  Serious: Yes (Other)
  Sender: FDA-Public Use
  Company Number: IL-BAXTER-2018BAX021427

PATIENT
  Age: 80 Year
  Sex: Female

DRUGS (5)
  1. NACL 0.9% INTRAVENOUS SOLUTION BP [Suspect]
     Active Substance: SODIUM CHLORIDE
     Indication: MEDICATION DILUTION
     Dosage: NACL 0.9% 100ML VIAFLO; (FIRST CYCLE)
     Route: 042
     Dates: start: 20180725, end: 20180725
  2. MABTHERA [Suspect]
     Active Substance: RITUXIMAB
     Dosage: SOLUTION, 100MG/10ML; 10ML COMPOUNDED WITH NACL 0.9% 250ML VIAFLO; (FIRST CYCLE)
     Route: 042
     Dates: start: 20180726, end: 20180726
  3. MABTHERA [Suspect]
     Active Substance: RITUXIMAB
     Dosage: SOLUTION, 500MG/50ML; 50ML COMPOUNDED WITH NACL 0.9% 250ML VIAFLO; (FIRST CYCLE)
     Route: 042
     Dates: start: 20180726, end: 20180726
  4. NACL 0.9% INTRAVENOUS SOLUTION BP [Suspect]
     Active Substance: SODIUM CHLORIDE
     Dosage: NACL 0.9% 250ML VIAFLO NP; (FIRST CYCLE)
     Route: 042
     Dates: start: 20180726, end: 20180726
  5. MABTHERA [Suspect]
     Active Substance: RITUXIMAB
     Indication: EXTRANODAL MARGINAL ZONE B-CELL LYMPHOMA (MALT TYPE)
     Dosage: SOLUTION, 100MG/10ML; 10ML COMPOUNDED WITH NACL 0.9% 100ML VIAFLO; (FIRST CYCLE)
     Route: 042
     Dates: start: 20180725, end: 20180725

REACTIONS (7)
  - Erythema [Recovered/Resolved]
  - Abdominal pain [Recovered/Resolved]
  - Headache [Unknown]
  - Hypersensitivity [Unknown]
  - Cough [Unknown]
  - Blood pressure increased [Unknown]
  - Throat irritation [Unknown]

NARRATIVE: CASE EVENT DATE: 201807
